FAERS Safety Report 25901008 (Version 1)
Quarter: 2025Q4

REPORT INFORMATION
  Report Type: Spontaneous
  Country: EU (occurrence: EU)
  Receive Date: 20251009
  Receipt Date: 20251009
  Transmission Date: 20260117
  Serious: Yes (Hospitalization)
  Sender: ALEXION PHARMACEUTICALS
  Company Number: EU-ASTRAZENECA-202510GLO006632FR

PATIENT
  Age: 77 Year
  Sex: Male
  Weight: 74 kg

DRUGS (8)
  1. OMEPRAZOLE [Suspect]
     Active Substance: OMEPRAZOLE
     Indication: Prophylaxis against gastrointestinal ulcer
     Dosage: 10 MILLIGRAM, QD
     Dates: start: 20250909
  2. ASPIRIN [Concomitant]
     Active Substance: ASPIRIN
  3. AMLODIPINE [Concomitant]
     Active Substance: AMLODIPINE BESYLATE
  4. TRANDOLAPRIL [Concomitant]
     Active Substance: TRANDOLAPRIL
     Dosage: UNK
  5. ACEBUTOLOL [Concomitant]
     Active Substance: ACEBUTOLOL
  6. EZETIMIBE [Concomitant]
     Active Substance: EZETIMIBE
  7. SIMVASTATIN [Concomitant]
     Active Substance: SIMVASTATIN
  8. POLYETHYLENE GLYCOL 4000 [Concomitant]
     Active Substance: POLYETHYLENE GLYCOL 4000

REACTIONS (1)
  - Tibia fracture [Recovering/Resolving]

NARRATIVE: CASE EVENT DATE: 20250908
